FAERS Safety Report 8111796-X (Version None)
Quarter: 2011Q4

REPORT INFORMATION
  Report Type: 
  Country: None (occurrence: None)
  Receive Date: 20111223
  Receipt Date: 20110117
  Transmission Date: 20120403
  Serious: Yes (Other)
  Sender: FDA-Public Use
  Company Number: PHHY2011US00448

PATIENT
  Age: 9 Year
  Sex: Male

DRUGS (5)
  1. CLOZARIL [Suspect]
     Dosage: 150 MG, BID, ORAL
     Route: 048
  2. ADDERALL XR (AMPHETAMINE ASPARATE, AMFETAMINE SULFATE DEXAMFETAMINE SA [Concomitant]
  3. MULTIVITAMINS (ASCORBIC ERGOCALCIFEROL, FOLIC ACID, NICOTINAMIDE, PANT [Concomitant]
  4. TENEX [Concomitant]
  5. COLACE (DOCUSATE SODIUM) [Concomitant]

REACTIONS (3)
  - SALIVARY GLAND ENLARGEMENT [None]
  - SALIVARY GLAND PAIN [None]
  - BLOOD AMYLASE DECREASED [None]
